FAERS Safety Report 8978409 (Version 2)
Quarter: 2013Q1

REPORT INFORMATION
  Report Type: Spontaneous
  Country: US (occurrence: US)
  Receive Date: 20121221
  Receipt Date: 20130127
  Transmission Date: 20140127
  Serious: Yes (Other)
  Sender: FDA-Public Use
  Company Number: US-BRISTOL-MYERS SQUIBB COMPANY-17132184

PATIENT
  Age: 47 Year
  Sex: Female
  Weight: 118.82 kg

DRUGS (3)
  1. ONGLYZA TABS 5 MG [Suspect]
     Indication: TYPE 2 DIABETES MELLITUS
     Dosage: DOSE DECREASED TO 25.MG;NDC:0003-4214-11? LAST INF:26NOV2012
     Route: 048
     Dates: start: 20121005, end: 20121126
  2. NADOLOL [Concomitant]
  3. PANTOPRAZOLE [Concomitant]

REACTIONS (5)
  - Nausea [Recovered/Resolved]
  - Headache [Recovered/Resolved]
  - Motion sickness [Recovered/Resolved]
  - Sensation of pressure [Recovered/Resolved]
  - Feeling abnormal [Recovered/Resolved]
